FAERS Safety Report 11083060 (Version 1)
Quarter: 2015Q2

REPORT INFORMATION
  Report Type: Spontaneous
  Country: US (occurrence: US)
  Receive Date: 20150501
  Receipt Date: 20150501
  Transmission Date: 20150821
  Serious: No
  Sender: FDA-Public Use
  Company Number: US-ABBVIE-14P-163-1284094-00

PATIENT
  Age: 29 Year
  Sex: Male
  Weight: 108.96 kg

DRUGS (3)
  1. ADDERALL [Concomitant]
     Active Substance: AMPHETAMINE ASPARTATE\AMPHETAMINE SULFATE\DEXTROAMPHETAMINE SACCHARATE\DEXTROAMPHETAMINE SULFATE
     Indication: ATTENTION DEFICIT/HYPERACTIVITY DISORDER
  2. ANDROGEL [Suspect]
     Active Substance: TESTOSTERONE
     Indication: BLOOD TESTOSTERONE DECREASED
     Dosage: 4 PUMPS
     Route: 061
     Dates: start: 20140402
  3. ANDROGEL [Suspect]
     Active Substance: TESTOSTERONE
     Dosage: 6 PUMPS
     Route: 061
     Dates: start: 201404, end: 201405

REACTIONS (2)
  - Blood testosterone decreased [Not Recovered/Not Resolved]
  - Blood testosterone increased [Recovered/Resolved]

NARRATIVE: CASE EVENT DATE: 2014
